FAERS Safety Report 6840917-1 (Version None)
Quarter: 2010Q3

REPORT INFORMATION
  Report Type: 
  Country: None (occurrence: None)
  Receive Date: 20100714
  Receipt Date: 20070621
  Transmission Date: 20110219
  Serious: No
  Sender: FDA-Public Use
  Company Number: US-PFIZER INC-2007052849

PATIENT
  Sex: Female
  Weight: 85.3 kg

DRUGS (5)
  1. CHANTIX [Suspect]
     Indication: SMOKING CESSATION THERAPY
     Dates: start: 20070501
  2. VYTORIN [Concomitant]
  3. LISINOPRIL [Concomitant]
  4. LOVAZA [Concomitant]
  5. MULTI-VITAMINS [Concomitant]

REACTIONS (3)
  - CRYING [None]
  - DECREASED INTEREST [None]
  - DEPRESSION [None]
